FAERS Safety Report 8846862 (Version 1)
Quarter: 2012Q4

REPORT INFORMATION
  Report Type: Spontaneous
  Country: US (occurrence: None)
  Receive Date: 20121017
  Receipt Date: 20121017
  Transmission Date: 20130627
  Serious: No
  Sender: FDA-Public Use
  Company Number: None

PATIENT
  Age: 47 Year
  Sex: Female
  Weight: 78.47 kg

DRUGS (1)
  1. LIPITOR [Suspect]
     Indication: CHOLESTEROL
     Dosage: 1 tablet daily po
     Route: 048

REACTIONS (2)
  - Intercepted drug dispensing error [None]
  - Medication error [None]
